FAERS Safety Report 7782353-X (Version None)
Quarter: 2011Q3

REPORT INFORMATION
  Report Type: 
  Country: None (occurrence: None)
  Receive Date: 20110927
  Receipt Date: 20110124
  Transmission Date: 20111222
  Serious: No
  Sender: FDA-Public Use
  Company Number: US-ALLERGAN-1101026US

PATIENT
  Sex: Female

DRUGS (1)
  1. ELIMITE [Suspect]
     Indication: ACARODERMATITIS

REACTIONS (1)
  - FORMICATION [None]
